FAERS Safety Report 5274484-3 (Version None)
Quarter: 2007Q1

REPORT INFORMATION
  Report Type: 
  Country: None (occurrence: None)
  Receive Date: 20070320
  Receipt Date: 20070312
  Transmission Date: 20070707
  Serious: Yes (Hospitalization)
  Sender: FDA-Public Use
  Company Number: 238345K06USA

PATIENT
  Age: 56 Year
  Sex: Female
  Weight: 90.7194 kg

DRUGS (4)
  1. REBIF [Suspect]
     Indication: MULTIPLE SCLEROSIS
     Dosage: 44 MCG, 3 IN 1 WEEKS, SUBCUTANEOUS
     Route: 058
     Dates: start: 20051012
  2. ATENOLOL [Concomitant]
  3. CHOLESTEROL MEDICATION (OTHER CHOLESTEROL AND TRIGLYCERIDE REDUCERS) [Concomitant]
  4. LEVOTHYROXINE (LEVOTHYROXINE /00068001/) [Concomitant]

REACTIONS (7)
  - ABASIA [None]
  - ARRHYTHMIA [None]
  - CARDIAC DISORDER [None]
  - CYSTITIS [None]
  - LOSS OF CONTROL OF LEGS [None]
  - MITRAL VALVE INCOMPETENCE [None]
  - MULTIPLE SCLEROSIS RELAPSE [None]
